FAERS Safety Report 13991078 (Version 2)
Quarter: 2017Q4

REPORT INFORMATION
  Report Type: Spontaneous
  Country: BR (occurrence: BR)
  Receive Date: 20170920
  Receipt Date: 20171031
  Transmission Date: 20180321
  Serious: Yes (Death, Hospitalization, Other)
  Sender: FDA-Public Use
  Company Number: BR-AMGEN-BRASP2017141283

PATIENT
  Age: 69 Year
  Sex: Male
  Weight: 72 kg

DRUGS (10)
  1. VECTIBIX [Suspect]
     Active Substance: PANITUMUMAB
     Indication: COLON CANCER METASTATIC
     Dosage: 432 MG, Q2WK (EACH 14 DAYS)
     Route: 042
     Dates: start: 20170704, end: 20170718
  2. FAULDFLUOR [Suspect]
     Active Substance: FLUOROURACIL
     Dosage: 4452 MG, Q2WK (EACH 14 DAYS)
     Route: 042
     Dates: start: 20170704, end: 20170718
  3. NAUSEDRON [Concomitant]
     Active Substance: ONDANSETRON HYDROCHLORIDE
     Dosage: 8 MG, UNK (1 TABLET - 12/ 12H - 3 DAYS POST-CHEMOTHERAPY)
  4. TECNOTECAN [Suspect]
     Active Substance: IRINOTECAN HYDROCHLORIDE
     Indication: COLON CANCER
     Dosage: 339 MG, Q2WK (EACH 14 DAYS)
     Route: 042
     Dates: start: 20170704, end: 20170718
  5. IMOSEC [Concomitant]
     Active Substance: LOPERAMIDE
     Indication: DIARRHOEA
     Dosage: 2 MG, AS NECESSARY (1 TABLET - 4 / 4H)
  6. FAULDLEUCO [Suspect]
     Active Substance: LEUCOVORIN CALCIUM
     Indication: COLON CANCER
     Dosage: 371 MG, Q2WK (EACH 14 DAYS)
     Route: 042
     Dates: start: 20170704, end: 20170718
  7. FAULDFLUOR [Suspect]
     Active Substance: FLUOROURACIL
     Indication: COLON CANCER
     Dosage: 742 MG, Q2WK (EACH 14 DAYS)
     Route: 042
     Dates: start: 20170704, end: 20170718
  8. OLMETEC [Concomitant]
     Active Substance: OLMESARTAN MEDOXOMIL
     Indication: HYPERTENSION
     Dosage: 20 MG, UNK (1 TABLET - 24 / 24H)
  9. TRAMADOL. [Concomitant]
     Active Substance: TRAMADOL
     Indication: PAIN
     Dosage: 50 MG, UNK (1 TABLET - 24 / 24H)
  10. XARELTO [Concomitant]
     Active Substance: RIVAROXABAN
     Indication: THROMBOSIS
     Dosage: 20 MG, (1 TABLET - 24/24H)

REACTIONS (5)
  - Abdominal distension [Recovering/Resolving]
  - General physical health deterioration [Recovering/Resolving]
  - Diarrhoea [Recovering/Resolving]
  - Dehydration [Recovering/Resolving]
  - Colon cancer metastatic [Fatal]

NARRATIVE: CASE EVENT DATE: 201707
